FAERS Safety Report 8409264 (Version 4)
Quarter: 2012Q4

REPORT INFORMATION
  Report Type: 
  Country: CA (occurrence: CA)
  Receive Date: 20120216
  Receipt Date: 20120903
  Transmission Date: 20130627
  Serious: Yes (Disabling, Other)
  Sender: FDA-Public Use
  Company Number: PHHY2012CA013225

PATIENT
  Sex: Female

DRUGS (7)
  1. CLOZARIL [Suspect]
     Indication: BIPOLAR DISORDER
     Dosage: 25 to 200 mg
     Dates: start: 20120125, end: 20120209
  2. CLOZARIL [Suspect]
     Dosage: 125-150 mg
     Route: 048
     Dates: start: 201203
  3. LITHIUM [Concomitant]
     Dosage: 1200 mg/day
  4. METFORMIN [Concomitant]
     Indication: TYPE 2 DIABETES MELLITUS
     Dosage: 500 mg, TID
  5. EPIVAL [Concomitant]
     Dosage: 1000 mg/day
  6. SYNTHROID [Concomitant]
     Dosage: 75 ug/day
  7. ZYPREXA [Concomitant]

REACTIONS (2)
  - Renal failure acute [Recovering/Resolving]
  - Antipsychotic drug level increased [Recovering/Resolving]
